FAERS Safety Report 11468361 (Version 2)
Quarter: 2015Q3

REPORT INFORMATION
  Report Type: Spontaneous
  Country: US (occurrence: US)
  Receive Date: 20150903
  Receipt Date: 20150903
  Transmission Date: 20151125
  Serious: Yes (Hospitalization)
  Sender: FDA-Public Use
  Company Number: US-ELI_LILLY_AND_COMPANY-US201108006236

PATIENT
  Age: 43 Year
  Sex: Female

DRUGS (3)
  1. RESTORIL [Concomitant]
     Active Substance: TEMAZEPAM
     Dosage: 38 DF, SINGLE
     Dates: start: 20110809, end: 20110809
  2. CYMBALTA [Suspect]
     Active Substance: DULOXETINE HYDROCHLORIDE
     Indication: DEPRESSION
     Dosage: 1 DF, UNK
  3. CYMBALTA [Suspect]
     Active Substance: DULOXETINE HYDROCHLORIDE
     Dosage: 2 DF, UNK

REACTIONS (1)
  - Suicide attempt [Unknown]

NARRATIVE: CASE EVENT DATE: 20110809
